FAERS Safety Report 7490317-9 (Version None)
Quarter: 2011Q2

REPORT INFORMATION
  Report Type: 
  Country: None (occurrence: None)
  Receive Date: 20110519
  Receipt Date: 20110506
  Transmission Date: 20111010
  Serious: Yes (Disabling, Other)
  Sender: FDA-Public Use
  Company Number: GB-JNJFOC-20110411054

PATIENT
  Sex: Female

DRUGS (2)
  1. MICONAZOLE NITRATE [Suspect]
     Route: 061
  2. MICONAZOLE NITRATE [Suspect]
     Indication: TINEA PEDIS
     Route: 061

REACTIONS (4)
  - HYPERSENSITIVITY [None]
  - THERMAL BURN [None]
  - SKIN HAEMORRHAGE [None]
  - BLISTER [None]
